APPROVED DRUG PRODUCT: DIMETHYL FUMARATE
Active Ingredient: DIMETHYL FUMARATE
Strength: 120MG
Dosage Form/Route: CAPSULE, DELAYED RELEASE;ORAL
Application: A210285 | Product #001
Applicant: SAWAI USA INC
Approved: Dec 21, 2021 | RLD: No | RS: No | Type: DISCN